FAERS Safety Report 25299489 (Version 3)
Quarter: 2025Q2

REPORT INFORMATION
  Report Type: Report from Study
  Country: US (occurrence: US)
  Receive Date: 20250512
  Receipt Date: 20250616
  Transmission Date: 20250716
  Serious: Yes (Hospitalization, Other)
  Sender: TAKEDA
  Company Number: US-TAKEDA-2025TUS043309

PATIENT
  Age: 55 Year
  Sex: Male
  Weight: 73 kg

DRUGS (1)
  1. IXAZOMIB [Suspect]
     Active Substance: IXAZOMIB
     Indication: Plasma cell myeloma

REACTIONS (3)
  - Renal failure [Unknown]
  - Chest pain [Recovered/Resolved]
  - Constipation [Unknown]

NARRATIVE: CASE EVENT DATE: 20250421
